FAERS Safety Report 11404736 (Version 1)
Quarter: 2015Q3

REPORT INFORMATION
  Report Type: Spontaneous
  Country: US (occurrence: US)
  Receive Date: 20150821
  Receipt Date: 20150821
  Transmission Date: 20151125
  Serious: Yes (Hospitalization)
  Sender: FDA-Public Use
  Company Number: GXBR2015US001862

PATIENT
  Sex: Female

DRUGS (1)
  1. AMOXICILLIN CAPSULES, USP [Suspect]
     Active Substance: AMOXICILLIN
     Indication: THROAT IRRITATION
     Dosage: 500 MG, UNK
     Route: 065
     Dates: start: 20150709, end: 20150718

REACTIONS (4)
  - Gait disturbance [Unknown]
  - Fatigue [Unknown]
  - White blood cell count abnormal [Unknown]
  - Red blood cell count abnormal [Unknown]
